FAERS Safety Report 15790986 (Version 1)
Quarter: 2019Q1

REPORT INFORMATION
  Report Type: Report from Study
  Country: GB (occurrence: GB)
  Receive Date: 20190104
  Receipt Date: 20190104
  Transmission Date: 20190417
  Serious: Yes (Other)
  Sender: FDA-Public Use
  Company Number: PHHY2019GB000740

PATIENT
  Sex: Female
  Weight: 88.5 kg

DRUGS (1)
  1. COSENTYX [Suspect]
     Active Substance: SECUKINUMAB
     Indication: PSORIATIC ARTHROPATHY
     Dosage: 300 MG, Q4W (PRE-FILLED PEN)
     Route: 058
     Dates: start: 20170811

REACTIONS (1)
  - Cholecystitis infective [Unknown]
